FAERS Safety Report 6955524-X (Version None)
Quarter: 2010Q3

REPORT INFORMATION
  Report Type: 
  Country: None (occurrence: None)
  Receive Date: 20100826
  Receipt Date: 20100826
  Transmission Date: 20110219
  Serious: No
  Sender: FDA-Public Use
  Company Number: None

PATIENT
  Sex: Female
  Weight: 56.1 kg

DRUGS (3)
  1. GEMCITABINE HCL [Suspect]
     Dosage: 4650 MG
     Dates: end: 20100720
  2. TARCEVA [Suspect]
     Dosage: 1100 MG
     Dates: end: 20100725
  3. PANITUMUMAB [Suspect]
     Dosage: 448 MG
     Dates: end: 20100720

REACTIONS (10)
  - ASTHENIA [None]
  - BILIARY DILATATION [None]
  - CHOLELITHIASIS [None]
  - DYSPHAGIA [None]
  - GAIT DISTURBANCE [None]
  - HEPATIC MASS [None]
  - INFECTION [None]
  - LETHARGY [None]
  - PRURITUS [None]
  - SYSTEMIC INFLAMMATORY RESPONSE SYNDROME [None]
